FAERS Safety Report 4664037-X (Version None)
Quarter: 2005Q2

REPORT INFORMATION
  Report Type: 
  Country: None (occurrence: None)
  Receive Date: 20050516
  Receipt Date: 20050506
  Transmission Date: 20051028
  Serious: Yes (Hospitalization)
  Sender: FDA-Public Use
  Company Number: 2005-03-2161

PATIENT
  Age: 69 Year
  Sex: Female

DRUGS (1)
  1. ALBUTEROL [Suspect]
     Indication: CHRONIC OBSTRUCTIVE PULMONARY DISEASE
     Dosage: ORAL AER INH
     Route: 055
     Dates: start: 19860101

REACTIONS (5)
  - BACK DISORDER [None]
  - LUNG DISORDER [None]
  - MALAISE [None]
  - MEDICAL DEVICE COMPLICATION [None]
  - PHARMACEUTICAL PRODUCT COMPLAINT [None]
